FAERS Safety Report 8853758 (Version 1)
Quarter: 2012Q4

REPORT INFORMATION
  Report Type: 
  Country: SE (occurrence: SE)
  Receive Date: 20121022
  Receipt Date: 20121022
  Transmission Date: 20130627
  Serious: Yes (Other)
  Sender: FDA-Public Use
  Company Number: SE-ASTRAZENECA-2012SE78942

PATIENT
  Age: 92 Year
  Sex: Female

DRUGS (6)
  1. AMIAS [Suspect]
     Indication: ESSENTIAL HYPERTENSION
     Route: 048
     Dates: start: 201203, end: 201203
  2. METOMYLAN [Suspect]
     Indication: ESSENTIAL HYPERTENSION
     Dates: start: 201203, end: 201203
  3. VAGIFEM [Concomitant]
     Route: 067
  4. VESICARE [Concomitant]
  5. HIPREX [Concomitant]
  6. FUROSEMIDE [Concomitant]

REACTIONS (5)
  - Alopecia [Not Recovered/Not Resolved]
  - Oedema [Recovered/Resolved]
  - Rhinitis [Recovered/Resolved]
  - Headache [Recovered/Resolved]
  - Pruritus [Recovered/Resolved]
